FAERS Safety Report 15536950 (Version 1)
Quarter: 2018Q4

REPORT INFORMATION
  Report Type: Spontaneous
  Country: US (occurrence: US)
  Receive Date: 20181022
  Receipt Date: 20181022
  Transmission Date: 20190205
  Serious: Yes (Hospitalization, Other)
  Sender: FDA-Public Use
  Company Number: US-APOTEX-2018AP023020

PATIENT
  Sex: Male

DRUGS (12)
  1. METHADONE [Suspect]
     Active Substance: METHADONE HYDROCHLORIDE
     Indication: DRUG WITHDRAWAL SYNDROME
     Dosage: 50 MG IN TOTAL, ON HOSPITAL DAY 1 (20 MG INITIAL DOSE FOLLOWED BY 3 DOSES OF 10 MG ADMINISTERED ORAL
     Route: 048
  2. METHADONE [Suspect]
     Active Substance: METHADONE HYDROCHLORIDE
     Dosage: 35 MG IN TOTAL, ON HOSPITAL DAY 2
     Route: 065
  3. HYDROXYZINE [Concomitant]
     Active Substance: HYDROXYZINE HYDROCHLORIDE
     Indication: DRUG WITHDRAWAL SYNDROME
     Dosage: 50 MG, UNK
     Route: 065
  4. ONDANSETRON [Suspect]
     Active Substance: ONDANSETRON
     Indication: DRUG WITHDRAWAL SYNDROME
     Dosage: 4 MG, UNK
     Route: 030
  5. ONDANSETRON [Suspect]
     Active Substance: ONDANSETRON
     Indication: VOMITING
  6. CHLORDIAZEPOXIDE. [Concomitant]
     Active Substance: CHLORDIAZEPOXIDE
     Dosage: TOTAL 170 MG (MORNING DOSE-40 MG)
     Route: 065
  7. ALPRAZOLAM. [Suspect]
     Active Substance: ALPRAZOLAM
     Indication: PRODUCT USED FOR UNKNOWN INDICATION
     Dosage: 2-4 MG DAILY
     Route: 048
  8. IBUPROFEN. [Concomitant]
     Active Substance: IBUPROFEN
     Indication: DRUG WITHDRAWAL SYNDROME
     Dosage: UNK
     Route: 065
  9. HEROIN [Suspect]
     Active Substance: DIAMORPHINE
     Indication: PRODUCT USED FOR UNKNOWN INDICATION
     Dosage: UNK, 2BUNDLES DAILY, INTRANASAL ROUTE
     Route: 045
  10. TRAZODONE [Suspect]
     Active Substance: TRAZODONE HYDROCHLORIDE
     Indication: DRUG WITHDRAWAL SYNDROME
     Dosage: 50 MG, UNK
     Route: 065
  11. ALCOHOL. [Suspect]
     Active Substance: ALCOHOL
     Indication: PRODUCT USED FOR UNKNOWN INDICATION
     Dosage: UNK, 12 BEERS AND 1 PINT OF VODKA DAILY
     Route: 065
  12. CHLORDIAZEPOXIDE. [Concomitant]
     Active Substance: CHLORDIAZEPOXIDE
     Indication: DRUG WITHDRAWAL SYNDROME
     Dosage: 200 MG, UNK
     Route: 065

REACTIONS (23)
  - Electrocardiogram QT prolonged [Unknown]
  - Arthralgia [Unknown]
  - Drug withdrawal syndrome [Unknown]
  - Myalgia [Unknown]
  - Tremor [Unknown]
  - Anxiety [Unknown]
  - Hypoglycaemia [Unknown]
  - Emotional distress [Unknown]
  - Hyperhidrosis [Unknown]
  - Ventricular tachyarrhythmia [Unknown]
  - Cold sweat [Unknown]
  - Restlessness [Unknown]
  - Insomnia [Unknown]
  - Drug abuse [Unknown]
  - Decreased appetite [Unknown]
  - Electrocardiogram abnormal [Unknown]
  - Chills [Unknown]
  - Nausea [Unknown]
  - Diarrhoea [Unknown]
  - Anosognosia [Unknown]
  - Irritability [Unknown]
  - Condition aggravated [Unknown]
  - Vomiting [Unknown]
